FAERS Safety Report 7027436-7 (Version None)
Quarter: 2010Q3

REPORT INFORMATION
  Report Type: 
  Country: None (occurrence: None)
  Receive Date: 20100930
  Receipt Date: 20100922
  Transmission Date: 20110219
  Serious: Yes (Hospitalization)
  Sender: FDA-Public Use
  Company Number: CIP10002315

PATIENT
  Age: 85 Year
  Sex: Female

DRUGS (10)
  1. ACTONEL [Suspect]
     Indication: OSTEOPOROSIS
     Dosage: 2.5 MG DAILY, ORAL
     Route: 048
     Dates: start: 20060130, end: 20081211
  2. MOBIC [Concomitant]
  3. ALFAROL (ALFACALCIDOL) [Concomitant]
  4. CALCIUM LACTATE (CALCIUM LACTATE) [Concomitant]
  5. ELCITONIN (ELCATONIN) [Concomitant]
  6. KETOPROFEN [Concomitant]
  7. OPALMON (LIMAPROST) [Concomitant]
  8. NEOLAMIN 3B /00520001/ (HYDROXOCOBALAMIN ACETATE, PYRIDOXAL PHOSPHATE, [Concomitant]
  9. NEUROTROPIN /06251301/ (RABIT VACCINIA EXTRACT) [Concomitant]
  10. VOLTAREN [Concomitant]

REACTIONS (8)
  - ARTHRALGIA [None]
  - DYSSTASIA [None]
  - FEMUR FRACTURE [None]
  - GAIT DISTURBANCE [None]
  - JOINT INJURY [None]
  - MUSCLE SPASMS [None]
  - PAIN IN EXTREMITY [None]
  - STRESS FRACTURE [None]
